FAERS Safety Report 7985647-8 (Version None)
Quarter: 2011Q4

REPORT INFORMATION
  Report Type: 
  Country: None (occurrence: None)
  Receive Date: 20111216
  Receipt Date: 20111207
  Transmission Date: 20120403
  Serious: Yes (Other)
  Sender: FDA-Public Use
  Company Number: GB-BRISTOL-MYERS SQUIBB COMPANY-16282816

PATIENT
  Age: 81 Year
  Sex: Female

DRUGS (1)
  1. GLUCOPHAGE [Suspect]
     Dosage: GLUCOPHAGE SR

REACTIONS (3)
  - COLECTOMY [None]
  - MEDICATION RESIDUE [None]
  - DIABETES MELLITUS INADEQUATE CONTROL [None]
